FAERS Safety Report 9225507 (Version 1)
Quarter: 2013Q2

REPORT INFORMATION
  Report Type: Spontaneous
  Country: US (occurrence: None)
  Receive Date: 20130410
  Receipt Date: 20130410
  Transmission Date: 20140414
  Serious: Yes (Other)
  Sender: FDA-Public Use
  Company Number: None

PATIENT
  Age: 28 Year
  Sex: Female
  Weight: 56.25 kg

DRUGS (2)
  1. ACYCLOVIR 800 MG CARLSBAD TECH [Suspect]
     Route: 048
     Dates: start: 20130331, end: 20130402
  2. ACYCLOVIR 800 MG CARLSBAD TECH [Suspect]
     Route: 048
     Dates: start: 20130331, end: 20130402

REACTIONS (3)
  - Migraine [None]
  - Fatigue [None]
  - Myalgia [None]
